FAERS Safety Report 21196910 (Version 3)
Quarter: 2023Q1

REPORT INFORMATION
  Report Type: Spontaneous
  Country: US (occurrence: US)
  Receive Date: 20220810
  Receipt Date: 20230105
  Transmission Date: 20230417
  Serious: Yes (Death, Hospitalization, Other)
  Sender: FDA-Public Use
  Company Number: US-TEVA-2022-US-2063594

PATIENT
  Age: 86 Year
  Sex: Female

DRUGS (22)
  1. VALSARTAN [Suspect]
     Active Substance: VALSARTAN
     Indication: Hypertension
     Dosage: 320 MILLIGRAM DAILY;
     Route: 048
     Dates: start: 20151024, end: 20170522
  2. VALSARTAN [Suspect]
     Active Substance: VALSARTAN
     Indication: Hypertension
     Dosage: 320 MILLIGRAM DAILY;
     Route: 048
     Dates: start: 20151024, end: 20170522
  3. VALSARTAN [Suspect]
     Active Substance: VALSARTAN
     Indication: Product used for unknown indication
     Dosage: 320 MILLIGRAM DAILY;
     Route: 048
  4. VALSARTAN [Suspect]
     Active Substance: VALSARTAN
     Indication: Product used for unknown indication
     Dosage: 320 MILLIGRAM DAILY;
     Route: 048
  5. DIOVAN [Suspect]
     Active Substance: VALSARTAN
     Indication: Hypertension
     Route: 048
     Dates: start: 20120605, end: 20151123
  6. IRBESARTAN [Suspect]
     Active Substance: IRBESARTAN
     Indication: Hypertension
     Route: 065
     Dates: start: 20180801, end: 20180923
  7. IRBESARTAN [Suspect]
     Active Substance: IRBESARTAN
     Indication: Hypertension
     Dosage: IRBESARTAN LUPIN
     Route: 065
     Dates: start: 20180926, end: 20190723
  8. IRBESARTAN [Suspect]
     Active Substance: IRBESARTAN
     Indication: Hypertension
     Dosage: 300 MILLIGRAM DAILY; IRBESARTAN CADISTA
     Route: 048
     Dates: start: 20190909, end: 20191009
  9. IRBESARTAN [Suspect]
     Active Substance: IRBESARTAN
     Indication: Hypertension
     Route: 065
     Dates: start: 20200629, end: 20200920
  10. Clonidine hydrocholoride [Concomitant]
     Indication: Product used for unknown indication
     Dosage: .2 MILLIGRAM DAILY; BEDTIME
     Route: 048
  11. METFORMIN [Concomitant]
     Active Substance: METFORMIN HYDROCHLORIDE
     Indication: Product used for unknown indication
     Dosage: 500 MILLIGRAM DAILY; BEDTIME
     Route: 048
  12. NIFEDIPINE [Concomitant]
     Active Substance: NIFEDIPINE
     Indication: Product used for unknown indication
     Dosage: 60 MILLIGRAM DAILY; EXTENDED RELEASE
     Route: 048
  13. VITAMINS [Concomitant]
     Active Substance: VITAMINS
     Indication: Routine health maintenance
     Dosage: DAILY
     Route: 065
     Dates: end: 202008
  14. POTASSIUM [Concomitant]
     Active Substance: POTASSIUM
     Indication: Routine health maintenance
     Dosage: DAILY
     Route: 065
     Dates: end: 202008
  15. VITAMIN E [Concomitant]
     Active Substance: .ALPHA.-TOCOPHEROL
     Indication: Routine health maintenance
     Dosage: DAILY
     Route: 065
     Dates: end: 202008
  16. VITAMIN C [Concomitant]
     Active Substance: ASCORBIC ACID
     Indication: Routine health maintenance
     Dosage: 1000 MILLIGRAM DAILY; DAILY
     Route: 048
     Dates: end: 202008
  17. ANASTROZOLE [Concomitant]
     Active Substance: ANASTROZOLE
     Indication: Breast cancer
     Route: 065
     Dates: start: 2008, end: 201706
  18. VITAMIN D3 [Concomitant]
     Active Substance: CHOLECALCIFEROL
     Indication: Product used for unknown indication
     Dosage: 25 MICROGRAM DAILY;
     Route: 048
  19. POTASSIUM CHLORIDE [Concomitant]
     Active Substance: POTASSIUM CHLORIDE
     Indication: Product used for unknown indication
     Dosage: 20 MILLIEQUIVALENTS DAILY; EXTENDED RELEASE 10 MILLIEQUIVALENTS BID
     Route: 048
  20. CARVEDILOL [Concomitant]
     Active Substance: CARVEDILOL
     Indication: Product used for unknown indication
     Dosage: 25 MILLIGRAM DAILY; 12.5 MG TWICE A DAY
     Route: 048
  21. LASIX [Concomitant]
     Active Substance: FUROSEMIDE
     Indication: Product used for unknown indication
     Dosage: 80 MILLIGRAM DAILY; 40 MG  TWICE A DAY
     Route: 048
  22. ATORVASTATIN [Concomitant]
     Active Substance: ATORVASTATIN
     Indication: Product used for unknown indication
     Dosage: 40 MILLIGRAM DAILY;
     Route: 048

REACTIONS (3)
  - Uterine cancer [Fatal]
  - Gastric cancer [Unknown]
  - Cervix carcinoma [Unknown]
